FAERS Safety Report 6202927-7 (Version None)
Quarter: 2009Q2

REPORT INFORMATION
  Report Type: 
  Country: None (occurrence: None)
  Receive Date: 20090520
  Receipt Date: 20090113
  Transmission Date: 20091009
  Serious: Yes (Other)
  Sender: FDA-Public Use
  Company Number: 2009PV000038

PATIENT
  Age: 40 Year
  Sex: Female
  Weight: 60 kg

DRUGS (2)
  1. DEPOCYT [Suspect]
     Indication: METASTASES TO MENINGES
     Dosage: 50 MG; X2; INTH
     Route: 037
     Dates: start: 20081016, end: 20081127
  2. METHOTREXATE [Suspect]
     Indication: METASTASES TO MENINGES
     Dosage: 15 MG; X4; INTH
     Route: 037
     Dates: start: 20080919, end: 20080929

REACTIONS (1)
  - LEUKOENCEPHALOPATHY [None]
